FAERS Safety Report 10337687 (Version 5)
Quarter: 2015Q1

REPORT INFORMATION
  Report Type: Report from Study
  Country: JP (occurrence: JP)
  Receive Date: 20140724
  Receipt Date: 20150123
  Transmission Date: 20150720
  Serious: Yes (Other)
  Sender: FDA-Public Use
  Company Number: JP-ROCHE-1439267

PATIENT
  Age: 73 Year
  Sex: Male
  Weight: 52 kg

DRUGS (4)
  1. SIMEPREVIR [Suspect]
     Active Substance: SIMEPREVIR
     Indication: CHRONIC HEPATITIS C
     Route: 048
     Dates: start: 20140401, end: 20140623
  2. RIBAVIRIN. [Suspect]
     Active Substance: RIBAVIRIN
     Dosage: DOSE REDUCED DUE TO EVENT
     Route: 048
     Dates: start: 20140513
  3. RIBAVIRIN. [Suspect]
     Active Substance: RIBAVIRIN
     Indication: CHRONIC HEPATITIS C
     Route: 048
     Dates: start: 20140401, end: 20140512
  4. PEGINTERFERON ALFA-2A [Suspect]
     Active Substance: PEGINTERFERON ALFA-2A
     Indication: CHRONIC HEPATITIS C
     Dosage: LAST DOSE OF PEGINTERFERON ALFA-2A WAS GIVEN ON 09-SEP-2014
     Route: 058
     Dates: start: 20140401

REACTIONS (14)
  - Alanine aminotransferase increased [Recovered/Resolved]
  - Constipation [Recovering/Resolving]
  - Hyperuricaemia [Recovered/Resolved]
  - Back pain [Recovering/Resolving]
  - Blood bilirubin increased [Recovering/Resolving]
  - Malaise [Recovered/Resolved]
  - Platelet count decreased [Recovered/Resolved]
  - Insomnia [Recovering/Resolving]
  - Dehydration [Recovered/Resolved]
  - White blood cell count decreased [Recovering/Resolving]
  - Pruritus [Recovering/Resolving]
  - Pyrexia [Recovering/Resolving]
  - Haemolytic anaemia [Recovered/Resolved]
  - Aspartate aminotransferase increased [Recovered/Resolved]

NARRATIVE: CASE EVENT DATE: 20140401
